FAERS Safety Report 14141468 (Version 1)
Quarter: 2017Q4

REPORT INFORMATION
  Report Type: Spontaneous
  Country: US (occurrence: US)
  Receive Date: 20171028
  Receipt Date: 20171028
  Transmission Date: 20180321
  Serious: No
  Sender: FDA-Public Use
  Company Number: None

PATIENT
  Sex: Female
  Weight: 57.6 kg

DRUGS (8)
  1. MENOPUR [Concomitant]
     Active Substance: FOLLITROPIN\LUTEINIZING HORMONE
  2. METFORMIN [Concomitant]
     Active Substance: METFORMIN HYDROCHLORIDE
  3. CITRANATAL HARMONY [Concomitant]
     Active Substance: .ALPHA.-TOCOPHEROL, DL-\CALCIUM CITRATE\CHOLECALCIFEROL\DOCONEXENT\DOCUSATE SODIUM\FOLIC ACID\IRON PENTACARBONYL\PYRIDOXINE HYDROCHLORIDE
  4. BABY ASPIRIN [Concomitant]
     Active Substance: ASPIRIN
  5. VITAMIN D [Concomitant]
     Active Substance: CHOLECALCIFEROL
  6. GONAL-F [Concomitant]
     Active Substance: FOLLITROPIN
  7. CETROTIDE [Concomitant]
     Active Substance: CETRORELIX ACETATE
  8. OMNITROPE [Suspect]
     Active Substance: SOMATROPIN
     Indication: PRODUCT USED FOR UNKNOWN INDICATION
     Dosage: ?          QUANTITY:1 INJECTION(S);?
     Route: 058
     Dates: start: 20170702, end: 20170708

REACTIONS (2)
  - Tachycardia [None]
  - Sleep disorder [None]

NARRATIVE: CASE EVENT DATE: 20170702
